FAERS Safety Report 7472345-2 (Version None)
Quarter: 2011Q1

REPORT INFORMATION
  Report Type: 
  Country: None (occurrence: None)
  Receive Date: 20110302
  Receipt Date: 20101221
  Transmission Date: 20110831
  Serious: Yes (Death, Hospitalization)
  Sender: FDA-Public Use
  Company Number: 163-21880-10092704

PATIENT
  Age: 82 Year
  Sex: Female
  Weight: 42 kg

DRUGS (13)
  1. LUMIGAN [Concomitant]
  2. ACYCLOVIR [Concomitant]
  3. DEXAMETHASONE [Concomitant]
  4. LORTAB (VICODIN) [Concomitant]
  5. AZOPT [Concomitant]
  6. OMEPRAZOLE [Concomitant]
  7. ATIVAN [Concomitant]
  8. CALCITRIOL [Concomitant]
  9. REVLIMID [Suspect]
     Indication: MULTIPLE MYELOMA
     Dosage: 5 MG, 1 IN 2 D, PO
     Route: 048
     Dates: start: 20100430
  10. DILAUDID [Concomitant]
  11. FLUCONAZOLE [Concomitant]
  12. RENAGEL [Concomitant]
  13. OXYCODONE HCL [Concomitant]

REACTIONS (5)
  - FAILURE TO THRIVE [None]
  - RENAL FAILURE ACUTE [None]
  - MULTIPLE MYELOMA [None]
  - ASTHENIA [None]
  - DISEASE PROGRESSION [None]
